FAERS Safety Report 24968721 (Version 2)
Quarter: 2025Q1

REPORT INFORMATION
  Report Type: Report from Study
  Country: TW (occurrence: TW)
  Receive Date: 20250214
  Receipt Date: 20250227
  Transmission Date: 20250408
  Serious: Yes (Hospitalization)
  Sender: ALEXION PHARMACEUTICALS
  Company Number: TW-AstraZeneca-CH-00807370A

PATIENT
  Weight: 84 kg

DRUGS (1)
  1. DURVALUMAB [Suspect]
     Active Substance: DURVALUMAB
     Dosage: 240 MILLIGRAM, Q4W

REACTIONS (2)
  - White blood cell count increased [Recovered/Resolved]
  - Asthenia [Recovered/Resolved]
